FAERS Safety Report 9307901 (Version 1)
Quarter: 2013Q2

REPORT INFORMATION
  Report Type: Report from Study
  Country: US (occurrence: US)
  Receive Date: 20130524
  Receipt Date: 20130524
  Transmission Date: 20140414
  Serious: Yes (Other)
  Sender: FDA-Public Use
  Company Number: PHEH2013US010033

PATIENT
  Sex: Female
  Weight: 74.83 kg

DRUGS (6)
  1. GILENYA [Suspect]
     Indication: MULTIPLE SCLEROSIS
     Dosage: 0.5 MG, QD
     Route: 048
     Dates: start: 20120815
  2. NUVIGIL [Concomitant]
     Dosage: 250 MG, PRN
     Route: 048
     Dates: start: 20121002
  3. NORCO [Concomitant]
     Dosage: HYDROCODONE BITARTRATE: 7.5 MG, PARACETAMOL: 325 MG, PRN
     Route: 048
     Dates: start: 20121002
  4. KLONOPIN [Concomitant]
     Dosage: 0.5 MG, TID
     Route: 048
     Dates: start: 20121129
  5. GABAPENTIN [Concomitant]
     Dosage: 400 MG, TID
     Route: 048
     Dates: start: 20121002
  6. LEVOXYL [Concomitant]
     Dosage: 100 UG, QD
     Route: 048
     Dates: start: 20121205

REACTIONS (6)
  - Fatigue [Recovering/Resolving]
  - Lethargy [Recovering/Resolving]
  - Feeling abnormal [Unknown]
  - Monocyte count increased [Unknown]
  - Lymphocyte count decreased [Unknown]
  - Leukopenia [Unknown]
